FAERS Safety Report 5399344-9 (Version None)
Quarter: 2007Q3

REPORT INFORMATION
  Report Type: 
  Country: None (occurrence: None)
  Receive Date: 20070727
  Receipt Date: 20070717
  Transmission Date: 20080115
  Serious: Yes (Hospitalization)
  Sender: FDA-Public Use
  Company Number: PHHO2007NZ11098

PATIENT
  Age: 71 Year
  Sex: Male

DRUGS (6)
  1. ZOLEDRONIC ACID [Suspect]
     Indication: METASTASES TO BONE
     Dosage: 4 MG, EVERY 3 MONTHS
     Route: 042
     Dates: start: 20060302
  2. LUCRIN [Concomitant]
     Indication: PROSTATE CANCER
     Dosage: 22.5 MG, Q3MO
     Dates: start: 20070302
  3. ALLOPURINOL [Concomitant]
     Indication: GOUT
  4. LOSEC [Concomitant]
     Indication: OESOPHAGITIS
  5. CARDIOXANE [Concomitant]
     Indication: HYPERTENSION
  6. PULMICORT [Concomitant]
     Indication: ASTHMA

REACTIONS (7)
  - ANGIOPLASTY [None]
  - GANGRENE [None]
  - HYPOCALCAEMIA [None]
  - HYPOPHOSPHATAEMIA [None]
  - NECROSIS [None]
  - PERIPHERAL ISCHAEMIA [None]
  - VOMITING [None]
